FAERS Safety Report 20054176 (Version 2)
Quarter: 2021Q4

REPORT INFORMATION
  Report Type: Spontaneous
  Country: US (occurrence: US)
  Receive Date: 20211110
  Receipt Date: 20211229
  Transmission Date: 20220304
  Serious: Yes (Hospitalization, Other)
  Sender: FDA-Public Use
  Company Number: US-CLOVIS ONCOLOGY-CLO-2021-001657

PATIENT
  Sex: Female

DRUGS (3)
  1. RUBRACA [Suspect]
     Active Substance: RUCAPARIB CAMSYLATE
     Indication: Ovarian cancer
     Dosage: 600 MILLIGRAM, BID
     Route: 048
     Dates: start: 202101, end: 2021
  2. RUBRACA [Suspect]
     Active Substance: RUCAPARIB CAMSYLATE
     Dosage: 200 MILLIGRAM, BID
     Dates: start: 2021, end: 202107
  3. RUBRACA [Suspect]
     Active Substance: RUCAPARIB CAMSYLATE
     Dosage: 300 MILLIGRAM, BID
     Dates: start: 2021, end: 2021

REACTIONS (8)
  - Renal disorder [Unknown]
  - Lyme disease [Unknown]
  - Carbohydrate antigen 125 increased [Unknown]
  - Somnolence [Unknown]
  - Abnormal dreams [Unknown]
  - Fatigue [Unknown]
  - Asthenia [Unknown]
  - Product use complaint [Unknown]

NARRATIVE: CASE EVENT DATE: 20210101
